FAERS Safety Report 23456107 (Version 1)
Quarter: 2024Q1

REPORT INFORMATION
  Report Type: Report from Study
  Country: LB (occurrence: LB)
  Receive Date: 20240130
  Receipt Date: 20240130
  Transmission Date: 20240410
  Serious: Yes (Other)
  Sender: FDA-Public Use
  Company Number: LB-MYLANLABS-2024M1008934

PATIENT

DRUGS (5)
  1. FLUOROURACIL [Suspect]
     Active Substance: FLUOROURACIL
     Indication: Pancreatic carcinoma
     Dosage: UNK, PART OF FOLFIRINOX REGIMEN AS INDUCTION THERAPY
     Route: 065
  2. FLUOROURACIL [Suspect]
     Active Substance: FLUOROURACIL
     Dosage: UNK, LATER, RECEIVED AS MAINTENANCE THERAPY
     Route: 065
  3. OXALIPLATIN [Concomitant]
     Active Substance: OXALIPLATIN
     Indication: Pancreatic carcinoma
     Dosage: UNK, PART OF FOLFIRINOX REGIMEN
     Route: 065
  4. IRINOTECAN [Concomitant]
     Active Substance: IRINOTECAN
     Indication: Pancreatic carcinoma
     Dosage: UNK, PART OF FOLFIRINOX REGIMEN
     Route: 065
  5. LEUCOVORIN [Concomitant]
     Active Substance: LEUCOVORIN\LEUCOVORIN CALCIUM
     Indication: Pancreatic carcinoma
     Dosage: UNK, PART OF FOLFIRINOX REGIMEN
     Route: 065

REACTIONS (3)
  - Disease progression [Unknown]
  - Drug ineffective for unapproved indication [Unknown]
  - Off label use [Unknown]
